FAERS Safety Report 9645843 (Version 1)
Quarter: 2013Q4

REPORT INFORMATION
  Report Type: Spontaneous
  Country: US (occurrence: None)
  Receive Date: 20131024
  Receipt Date: 20131024
  Transmission Date: 20140711
  Serious: Yes (Hospitalization)
  Sender: FDA-Public Use
  Company Number: None

PATIENT
  Age: 53 Year
  Sex: Male
  Weight: 82.8 kg

DRUGS (2)
  1. NAPROXEN [Suspect]
     Indication: PAIN
     Route: 048
     Dates: end: 20130930
  2. LISINOPRIL [Suspect]
     Indication: HYPERTENSION
     Route: 048
     Dates: start: 20130529, end: 20130930

REACTIONS (1)
  - Renal failure acute [None]
